FAERS Safety Report 16844759 (Version 1)
Quarter: 2019Q4

REPORT INFORMATION
  Report Type: Spontaneous
  Country: US (occurrence: US)
  Receive Date: 20190924
  Receipt Date: 20190924
  Transmission Date: 20200122
  Serious: Yes (Hospitalization)
  Sender: FDA-Public Use
  Company Number: None

PATIENT
  Age: 49 Year
  Sex: Male

DRUGS (6)
  1. LOVENOX [Concomitant]
     Active Substance: ENOXAPARIN SODIUM
  2. LOSARTAN. [Concomitant]
     Active Substance: LOSARTAN
  3. NADOLOL. [Concomitant]
     Active Substance: NADOLOL
  4. TYLENOL [Concomitant]
     Active Substance: ACETAMINOPHEN
  5. LEUKINE [Suspect]
     Active Substance: SARGRAMOSTIM
     Indication: METASTATIC NEOPLASM
     Route: 058
  6. BACLOFEN. [Concomitant]
     Active Substance: BACLOFEN

REACTIONS (2)
  - Therapy cessation [None]
  - Amnesia [None]
